FAERS Safety Report 12070754 (Version 1)
Quarter: 2016Q1

REPORT INFORMATION
  Report Type: Spontaneous
  Country: US (occurrence: US)
  Receive Date: 20160211
  Receipt Date: 20160211
  Transmission Date: 20160526
  Serious: Yes (Other)
  Sender: FDA-Public Use
  Company Number: US-GLAXOSMITHKLINE-US2016GSK019106

PATIENT
  Age: 57 Year
  Sex: Male

DRUGS (1)
  1. FLUTICASONE [Suspect]
     Active Substance: FLUTICASONE\FLUTICASONE PROPIONATE
     Indication: DYSPNOEA
     Dosage: 220 TO 2,640 UG/DAY
     Route: 055

REACTIONS (9)
  - Excessive granulation tissue [Unknown]
  - Tracheobronchomegaly [Unknown]
  - Chondropathy [Unknown]
  - Tracheal disorder [Unknown]
  - Mucosal atrophy [Unknown]
  - Muscle atrophy [Unknown]
  - Productive cough [Unknown]
  - Bronchomalacia [Unknown]
  - Tracheomalacia [Unknown]
